FAERS Safety Report 4830264-1 (Version None)
Quarter: 2005Q4

REPORT INFORMATION
  Report Type: 
  Country: None (occurrence: None)
  Receive Date: 20051117
  Receipt Date: 20051116
  Transmission Date: 20060501
  Serious: Yes (Hospitalization)
  Sender: FDA-Public Use
  Company Number: DK-GLAXOSMITHKLINE-B0400685A

PATIENT
  Age: 59 Year
  Sex: Female

DRUGS (4)
  1. KIVEXA [Suspect]
     Indication: DRUG USE FOR UNKNOWN INDICATION
     Route: 065
     Dates: start: 20051017
  2. REYATAZ [Concomitant]
     Dosage: 300MG UNKNOWN
     Route: 065
     Dates: start: 20051017
  3. NORVIR [Concomitant]
     Route: 065
  4. TRIZIVIR [Concomitant]
     Route: 065

REACTIONS (4)
  - DIZZINESS [None]
  - MALAISE [None]
  - PALPITATIONS [None]
  - RASH ERYTHEMATOUS [None]
